FAERS Safety Report 16378885 (Version 1)
Quarter: 2019Q2

REPORT INFORMATION
  Report Type: Spontaneous
  Country: US (occurrence: US)
  Receive Date: 20190531
  Receipt Date: 20190531
  Transmission Date: 20190711
  Serious: No
  Sender: FDA-Public Use
  Company Number: US-BRACCO-2019US02645

PATIENT
  Sex: Female

DRUGS (7)
  1. MULTIHANCE [Suspect]
     Active Substance: GADOBENATE DIMEGLUMINE
     Indication: DIAGNOSTIC PROCEDURE
     Dosage: UNK, SINGLE
     Dates: start: 20150608, end: 20150608
  2. MULTIHANCE [Suspect]
     Active Substance: GADOBENATE DIMEGLUMINE
     Indication: DIAGNOSTIC PROCEDURE
     Dosage: UNK, SINGLE
     Dates: start: 20170911, end: 20170911
  3. MULTIHANCE [Suspect]
     Active Substance: GADOBENATE DIMEGLUMINE
     Indication: DIAGNOSTIC PROCEDURE
     Dosage: UNK, SINGLE
     Dates: start: 20180924, end: 20180924
  4. MULTIHANCE [Suspect]
     Active Substance: GADOBENATE DIMEGLUMINE
     Indication: DIAGNOSTIC PROCEDURE
     Dosage: UNK UNK, SINGLE
     Dates: start: 20160615, end: 20160615
  5. OMNISCAN [Suspect]
     Active Substance: GADODIAMIDE
     Indication: DIAGNOSTIC PROCEDURE
     Dosage: UNK
     Dates: start: 20140425, end: 20140425
  6. OMNISCAN [Suspect]
     Active Substance: GADODIAMIDE
     Indication: DIAGNOSTIC PROCEDURE
     Dosage: UNK
     Dates: start: 20080812, end: 20080812
  7. OMNISCAN [Suspect]
     Active Substance: GADODIAMIDE
     Indication: DIAGNOSTIC PROCEDURE
     Dosage: UNK
     Dates: start: 20100120, end: 20100120

REACTIONS (2)
  - Urine analysis abnormal [Unknown]
  - No adverse event [Unknown]
